FAERS Safety Report 9553065 (Version 1)
Quarter: 2013Q3

REPORT INFORMATION
  Report Type: Spontaneous
  Country: US (occurrence: None)
  Receive Date: 20130912
  Receipt Date: 20130912
  Transmission Date: 20140515
  Serious: Yes (Hospitalization)
  Sender: FDA-Public Use
  Company Number: 2013037894

PATIENT
  Age: 47 Year
  Sex: Female

DRUGS (1)
  1. ZEMAIRA [Suspect]
     Route: 042

REACTIONS (1)
  - Pneumonia [None]
